FAERS Safety Report 18961682 (Version 2)
Quarter: 2021Q3

REPORT INFORMATION
  Report Type: Spontaneous
  Country: FR (occurrence: FR)
  Receive Date: 20210302
  Receipt Date: 20210716
  Transmission Date: 20211014
  Serious: Yes (Hospitalization)
  Sender: FDA-Public Use
  Company Number: FR-TEVA-2021-FR-1884339

PATIENT
  Age: 66 Year
  Sex: Female
  Weight: 70 kg

DRUGS (9)
  1. INEGY 10 MG/40 MG, COMPRIME [Concomitant]
     Active Substance: EZETIMIBE\SIMVASTATIN
  2. ESIDREX [Suspect]
     Active Substance: HYDROCHLOROTHIAZIDE
     Indication: HYPERTENSION
     Dosage: 25MILLIGRAM
     Route: 048
     Dates: end: 20210208
  3. SERETIDE DISKUS 500/50 MICROGRAMMES/DOSE, POUDRE POUR INHALATION EN RE [Concomitant]
  4. KARDEGIC [Concomitant]
     Active Substance: ASPIRIN DL-LYSINE
  5. ZOPICLONE [Concomitant]
     Active Substance: ZOPICLONE
  6. LANSOPRAZOLE. [Suspect]
     Active Substance: LANSOPRAZOLE
     Indication: GASTROOESOPHAGEAL REFLUX DISEASE
     Dosage: 60MILLIGRAM
     Route: 048
     Dates: end: 20210208
  7. METFORMINE [Concomitant]
     Active Substance: METFORMIN HYDROCHLORIDE
  8. PRIMPERAN [Concomitant]
     Active Substance: METOCLOPRAMIDE HYDROCHLORIDE
  9. BROMAZEPAM [Concomitant]
     Active Substance: BROMAZEPAM

REACTIONS (7)
  - Hypokalaemia [Recovered/Resolved]
  - Toxic encephalopathy [Recovered/Resolved]
  - Vertigo [Recovered/Resolved]
  - Balance disorder [Recovered/Resolved]
  - Blood phosphorus decreased [Recovered/Resolved]
  - Hypomagnesaemia [Recovered/Resolved]
  - Tremor [Recovered/Resolved]

NARRATIVE: CASE EVENT DATE: 20201115
